FAERS Safety Report 11583805 (Version 1)
Quarter: 2015Q4

REPORT INFORMATION
  Report Type: Spontaneous
  Country: US (occurrence: US)
  Receive Date: 20151001
  Receipt Date: 20151001
  Transmission Date: 20160304
  Serious: No
  Sender: FDA-Public Use
  Company Number: US-ROCHE-668200

PATIENT
  Age: 27 Year
  Sex: Female

DRUGS (1)
  1. PEGASYS [Suspect]
     Active Substance: PEGINTERFERON ALFA-2A
     Indication: PRODUCT USED FOR UNKNOWN INDICATION
     Route: 065
     Dates: start: 20091026, end: 20091026

REACTIONS (2)
  - Accidental exposure to product [Unknown]
  - No adverse event [Unknown]

NARRATIVE: CASE EVENT DATE: 20091026
